FAERS Safety Report 5850428-8 (Version None)
Quarter: 2008Q3

REPORT INFORMATION
  Report Type: 
  Country: None (occurrence: None)
  Receive Date: 20080819
  Receipt Date: 20080807
  Transmission Date: 20090109
  Serious: Yes (Death, Hospitalization)
  Sender: FDA-Public Use
  Company Number: US-PFIZER INC-2008053262

PATIENT
  Age: 60 Year
  Sex: Male
  Weight: 95 kg

DRUGS (10)
  1. SU-011,248 [Suspect]
     Indication: SMALL CELL LUNG CANCER STAGE UNSPECIFIED
     Route: 048
     Dates: start: 20080516, end: 20080526
  2. CISPLATIN [Suspect]
     Indication: SMALL CELL LUNG CANCER STAGE UNSPECIFIED
     Route: 042
     Dates: start: 20080516, end: 20080516
  3. ETOPOSIDE [Suspect]
     Indication: SMALL CELL LUNG CANCER STAGE UNSPECIFIED
     Route: 042
     Dates: start: 20080516, end: 20080518
  4. FORMOTEROL FUMARATE [Concomitant]
     Route: 055
  5. IPRATROPIUM BROMIDE [Concomitant]
     Route: 055
  6. ISOSORBIDE MONONITRATE [Concomitant]
  7. LISINOPRIL [Concomitant]
  8. METOPROLOL TARTRATE [Concomitant]
  9. ALBUTEROL [Concomitant]
  10. MOMETASONE FUROATE [Concomitant]
     Route: 055

REACTIONS (1)
  - FEBRILE NEUTROPENIA [None]
